FAERS Safety Report 6027369-9 (Version None)
Quarter: 2009Q1

REPORT INFORMATION
  Report Type: 
  Country: None (occurrence: None)
  Receive Date: 20090105
  Receipt Date: 20081223
  Transmission Date: 20090719
  Serious: Yes (Disabling, Other)
  Sender: FDA-Public Use
  Company Number: B0552293A

PATIENT
  Age: 58 Year
  Sex: Male

DRUGS (8)
  1. ARTIST [Suspect]
     Indication: HYPERTENSION
     Route: 065
  2. ISONIAZID [Suspect]
     Indication: TUBERCULOSIS
  3. RIFAMPICIN [Suspect]
     Indication: TUBERCULOSIS
  4. TEMOCAPRIL [Suspect]
     Indication: HYPERTENSION
  5. AMLODIPINE [Suspect]
  6. ADALAT [Suspect]
  7. ETHAMBUTOL [Concomitant]
  8. PYRAZINAMIDE [Concomitant]
     Indication: TUBERCULOSIS
     Dates: start: 20070201, end: 20070501

REACTIONS (3)
  - BLOOD PRESSURE INADEQUATELY CONTROLLED [None]
  - CEREBRAL INFARCTION [None]
  - DRUG INTERACTION [None]
